FAERS Safety Report 6951383-X (Version None)
Quarter: 2010Q3

REPORT INFORMATION
  Report Type: 
  Country: None (occurrence: None)
  Receive Date: 20100828
  Receipt Date: 20100322
  Transmission Date: 20110219
  Serious: No
  Sender: FDA-Public Use
  Company Number: US-ABBOTT-10P-163-0634748-00

PATIENT
  Sex: Male
  Weight: 71.732 kg

DRUGS (6)
  1. NIASPAN [Suspect]
     Indication: BLOOD TRIGLYCERIDES INCREASED
     Dates: start: 20100228
  2. AVADART [Concomitant]
     Indication: PROSTATIC DISORDER
  3. ACTONEL [Concomitant]
     Indication: BONE DISORDER
  4. THYROID MEDICATION [Concomitant]
     Indication: THYROID DISORDER
  5. M.V.I. [Concomitant]
     Indication: PRODUCT USED FOR UNKNOWN INDICATION
  6. PERSERVISION (OTC) [Concomitant]
     Indication: PRODUCT USED FOR UNKNOWN INDICATION

REACTIONS (2)
  - VISUAL ACUITY REDUCED [None]
  - VISUAL IMPAIRMENT [None]
